FAERS Safety Report 10224740 (Version 2)
Quarter: 2014Q2

REPORT INFORMATION
  Report Type: Spontaneous
  Country: CA (occurrence: CA)
  Receive Date: 20140609
  Receipt Date: 20140609
  Transmission Date: 20141212
  Serious: Yes (Other)
  Sender: FDA-Public Use
  Company Number: CA-TEVA-461982USA

PATIENT
  Age: 84 Year
  Sex: Male

DRUGS (3)
  1. TREANDA [Suspect]
     Indication: LYMPHOPLASMACYTOID LYMPHOMA/IMMUNOCYTOMA
     Route: 042
     Dates: start: 20131118
  2. TREANDA [Suspect]
     Route: 042
     Dates: start: 20140515
  3. RITUXIMAB [Suspect]
     Route: 042

REACTIONS (2)
  - Pleural effusion [Recovered/Resolved]
  - Off label use [Unknown]
